FAERS Safety Report 5305543-4 (Version None)
Quarter: 2007Q2

REPORT INFORMATION
  Report Type: 
  Country: None (occurrence: None)
  Receive Date: 20070424
  Receipt Date: 20070206
  Transmission Date: 20071010
  Serious: No
  Sender: FDA-Public Use
  Company Number: US-GLAXOSMITHKLINE-A0634954A

PATIENT
  Age: 77 Year
  Sex: Female
  Weight: 67.3 kg

DRUGS (9)
  1. FLOVENT [Suspect]
     Indication: ASTHMA
     Dosage: 2PUFF PER DAY
     Route: 055
     Dates: start: 20030101, end: 20060101
  2. SPIRONOLACTONE [Concomitant]
  3. AVAPRO [Concomitant]
  4. SYNTHROID [Concomitant]
  5. ZETIA [Concomitant]
  6. ACTONEL [Concomitant]
  7. CALCIUM [Concomitant]
  8. TYLENOL [Concomitant]
  9. VITAMINS [Concomitant]

REACTIONS (1)
  - THERAPEUTIC RESPONSE DECREASED [None]
